FAERS Safety Report 6253277-4 (Version None)
Quarter: 2009Q3

REPORT INFORMATION
  Report Type: 
  Country: None (occurrence: None)
  Receive Date: 20090701
  Receipt Date: 20090623
  Transmission Date: 20100115
  Serious: Yes (Hospitalization)
  Sender: FDA-Public Use
  Company Number: CA-JNJFOC-20090606614

PATIENT
  Sex: Male
  Weight: 137.5 kg

DRUGS (3)
  1. REMICADE [Suspect]
     Dosage: 27 APR 2009 REPORTED AS MOST RECENT INFUSION. TOTAL NUMBER OF DOSES 24
     Route: 042
  2. REMICADE [Suspect]
     Indication: ANKYLOSING SPONDYLITIS
     Route: 042
  3. DILANTIN [Suspect]
     Indication: DRUG USE FOR UNKNOWN INDICATION

REACTIONS (2)
  - DRUG LEVEL INCREASED [None]
  - FALL [None]
